FAERS Safety Report 9099659 (Version 16)
Quarter: 2018Q2

REPORT INFORMATION
  Report Type: Report from Study
  Country: CA (occurrence: CA)
  Receive Date: 20130214
  Receipt Date: 20180424
  Transmission Date: 20180711
  Serious: Yes (Life-Threatening, Hospitalization, Other)
  Sender: FDA-Public Use
  Company Number: CA-ROCHE-1131743

PATIENT
  Age: 69 Year
  Sex: Male
  Weight: 88.9 kg

DRUGS (29)
  1. PANTOPRAZOLE [Suspect]
     Active Substance: PANTOPRAZOLE
     Indication: OROPHARYNGEAL PAIN
  2. MOBICOX [Concomitant]
     Active Substance: MELOXICAM
     Route: 065
  3. ACTONEL [Concomitant]
     Active Substance: RISEDRONATE SODIUM
     Route: 065
  4. NOVORAPID [Concomitant]
     Active Substance: INSULIN ASPART
     Dosage: PRN AT MEALS
     Route: 065
  5. VENTOLIN [Concomitant]
     Active Substance: ALBUTEROL SULFATE
  6. PANTOPRAZOLE [Suspect]
     Active Substance: PANTOPRAZOLE
     Indication: DYSPEPSIA
     Route: 065
  7. COVERSYL [Concomitant]
     Active Substance: PERINDOPRIL
  8. LIPITOR [Concomitant]
     Active Substance: ATORVASTATIN CALCIUM
  9. ASA [Concomitant]
     Active Substance: ASPIRIN
     Route: 065
  10. ECHINACEA [Concomitant]
     Active Substance: ECHINACEA, UNSPECIFIED
     Dosage: PRN
     Route: 065
  11. RITUXAN [Suspect]
     Active Substance: RITUXIMAB
     Indication: RHEUMATOID ARTHRITIS
     Dosage: PREVIOUS RITUXAN DOSE: 03/APR/2013, 24/MAR/2015
     Route: 042
     Dates: start: 20120216
  12. SALMON OIL [Concomitant]
     Active Substance: FISH OIL
  13. BISOPROLOL [Concomitant]
     Active Substance: BISOPROLOL
  14. NORVASC [Concomitant]
     Active Substance: AMLODIPINE BESYLATE
  15. VITAMIN C [Concomitant]
     Active Substance: ASCORBIC ACID
  16. DIPHENHYDRAMINE HCL [Concomitant]
     Active Substance: DIPHENHYDRAMINE HYDROCHLORIDE
     Indication: PREMEDICATION
     Route: 048
     Dates: start: 20120216
  17. NITRO-PATCH [Concomitant]
  18. PREVACID [Suspect]
     Active Substance: LANSOPRAZOLE
     Indication: PRODUCT USED FOR UNKNOWN INDICATION
     Route: 065
  19. PLAQUENIL [Concomitant]
     Active Substance: HYDROXYCHLOROQUINE SULFATE
     Route: 065
  20. LANTUS [Concomitant]
     Active Substance: INSULIN GLARGINE
     Indication: DIABETES MELLITUS
  21. SPIRIVA [Concomitant]
     Active Substance: TIOTROPIUM BROMIDE MONOHYDRATE
  22. ELTROXIN [Concomitant]
     Active Substance: LEVOTHYROXINE
  23. ACETAMINOPHEN. [Concomitant]
     Active Substance: ACETAMINOPHEN
     Indication: PREMEDICATION
     Route: 048
     Dates: start: 20120216
  24. FOLIC ACID. [Concomitant]
     Active Substance: FOLIC ACID
  25. METHYLPREDNISOLONE. [Concomitant]
     Active Substance: METHYLPREDNISOLONE
     Indication: PREMEDICATION
     Route: 042
     Dates: start: 20120216, end: 20140514
  26. ADVAIR HFA [Concomitant]
     Active Substance: FLUTICASONE PROPIONATE\SALMETEROL XINAFOATE
  27. HYDROMORPHONE [Concomitant]
     Active Substance: HYDROMORPHONE
     Route: 048
  28. METHOTREXATE. [Concomitant]
     Active Substance: METHOTREXATE
     Route: 065
  29. PREDNISONE. [Concomitant]
     Active Substance: PREDNISONE
     Route: 065
     Dates: start: 2002

REACTIONS (25)
  - Blood pressure decreased [Not Recovered/Not Resolved]
  - Fluid retention [Unknown]
  - Chest pain [Not Recovered/Not Resolved]
  - Oropharyngeal pain [Unknown]
  - Myocardial infarction [Unknown]
  - Pneumonia [Recovered/Resolved]
  - Sepsis [Recovered/Resolved]
  - Gastroenteritis salmonella [Unknown]
  - Musculoskeletal stiffness [Not Recovered/Not Resolved]
  - Squamous cell carcinoma [Unknown]
  - Cerebrovascular accident [Unknown]
  - Basal cell carcinoma [Not Recovered/Not Resolved]
  - Occult blood positive [Unknown]
  - Influenza [Unknown]
  - Fungal skin infection [Unknown]
  - Vascular occlusion [Unknown]
  - Vascular occlusion [Not Recovered/Not Resolved]
  - Speech disorder [Unknown]
  - Pain [Not Recovered/Not Resolved]
  - Diarrhoea [Recovered/Resolved]
  - Prostatomegaly [Unknown]
  - Subclavian vein occlusion [Not Recovered/Not Resolved]
  - Rheumatoid arthritis [Not Recovered/Not Resolved]
  - Dyspnoea [Not Recovered/Not Resolved]
  - Dyspepsia [Unknown]

NARRATIVE: CASE EVENT DATE: 20120912
